FAERS Safety Report 11903962 (Version 1)
Quarter: 2016Q1

REPORT INFORMATION
  Report Type: Spontaneous
  Country: US (occurrence: US)
  Receive Date: 20160111
  Receipt Date: 20160111
  Transmission Date: 20160526
  Serious: Yes (Death)
  Sender: FDA-Public Use
  Company Number: US-GALENA BIOPHARMA-1046318

PATIENT
  Age: 56 Year
  Sex: Male
  Weight: 57.27 kg

DRUGS (10)
  1. LYRICA [Concomitant]
     Active Substance: PREGABALIN
  2. ZOFRAN [Concomitant]
     Active Substance: ONDANSETRON HYDROCHLORIDE
  3. DILAUDID [Concomitant]
     Active Substance: HYDROMORPHONE HYDROCHLORIDE
  4. ABSTRAL [Suspect]
     Active Substance: FENTANYL CITRATE
     Indication: BREAKTHROUGH PAIN
     Route: 060
     Dates: start: 201311, end: 201312
  5. FOLIC ACID. [Concomitant]
     Active Substance: FOLIC ACID
  6. REFMAL329 [Concomitant]
  7. PHENERGAN [Concomitant]
     Active Substance: PROMETHAZINE HYDROCHLORIDE
  8. DULCOLAX NOS [Concomitant]
     Active Substance: BISACODYL OR DOCUSATE SODIUM
  9. LOVENOX [Concomitant]
     Active Substance: ENOXAPARIN SODIUM
     Dates: start: 201402
  10. CALCIUM NOS [Concomitant]
     Active Substance: CALCIUM

REACTIONS (6)
  - Confusional state [None]
  - Disease progression [Fatal]
  - Gait disturbance [None]
  - Mass [None]
  - Feeling abnormal [None]
  - Weight decreased [None]

NARRATIVE: CASE EVENT DATE: 201311
